FAERS Safety Report 7884347-2 (Version None)
Quarter: 2011Q4

REPORT INFORMATION
  Report Type: 
  Country: None (occurrence: None)
  Receive Date: 20111102
  Receipt Date: 20111027
  Transmission Date: 20120403
  Serious: Yes (Other)
  Sender: FDA-Public Use
  Company Number: US-PFIZER INC-2011263825

PATIENT
  Sex: Female

DRUGS (2)
  1. FOSTEUM [Suspect]
     Dosage: UNK
  2. PREMPRO [Suspect]
     Dosage: UNK

REACTIONS (1)
  - OSTEOPOROSIS [None]
